FAERS Safety Report 8737375 (Version 3)
Quarter: 2012Q4

REPORT INFORMATION
  Report Type: 
  Country: JP (occurrence: JP)
  Receive Date: 20120822
  Receipt Date: 20121015
  Transmission Date: 20130627
  Serious: Yes (Other)
  Sender: FDA-Public Use
  Company Number: JP-PFIZER INC-2012200172

PATIENT
  Age: 38 Year
  Sex: Female

DRUGS (6)
  1. PREMARIN [Suspect]
     Indication: PREMATURE MENOPAUSE
     Dosage: UNK
     Route: 048
     Dates: start: 20120728, end: 20120818
  2. AMERGE [Concomitant]
     Dosage: UNK
     Dates: start: 201202
  3. XYZAL [Concomitant]
     Dosage: UNK
     Dates: start: 201202
  4. DIQUAS [Concomitant]
     Dosage: 6 Gtt, UNK
     Dates: start: 20120723, end: 20120815
  5. DIQUAS [Concomitant]
     Dosage: 2 Gtt, UNK
     Dates: start: 20120816
  6. HYALEIN [Concomitant]
     Dosage: 4 Gtt, UNK
     Dates: start: 20120723

REACTIONS (2)
  - Conjunctival haemorrhage [Not Recovered/Not Resolved]
  - Condition aggravated [Not Recovered/Not Resolved]
